FAERS Safety Report 9858897 (Version 1)
Quarter: 2014Q1

REPORT INFORMATION
  Report Type: Spontaneous
  Country: US (occurrence: US)
  Receive Date: 20140131
  Receipt Date: 20140131
  Transmission Date: 20141002
  Serious: Yes (Other)
  Sender: FDA-Public Use
  Company Number: CHPA2014US001356

PATIENT
  Age: 71 Year
  Sex: Female

DRUGS (7)
  1. GAS-X EXTSTR CHEWABLE TABS CHERRY CREME [Suspect]
     Indication: ABDOMINAL DISTENSION
     Dosage: 1 TO 2 DF, QD
     Route: 048
  2. GAS-X EXTSTR CHEWABLE TABS CHERRY CREME [Suspect]
     Indication: PALPITATIONS
  3. GAS-X EXTSTR CHEWABLE TABS CHERRY CREME [Suspect]
     Indication: OFF LABEL USE
  4. GAS-X [Suspect]
     Indication: ABDOMINAL DISTENSION
  5. GAS-X [Suspect]
     Indication: PALPITATIONS
  6. GAS-X [Suspect]
     Indication: OFF LABEL USE
  7. LISINOPRIL [Concomitant]
     Indication: BLOOD PRESSURE
     Dosage: 5 MG, UNK

REACTIONS (11)
  - Sleep apnoea syndrome [Not Recovered/Not Resolved]
  - Antiphospholipid antibodies [Not Recovered/Not Resolved]
  - Vagus nerve disorder [Recovered/Resolved]
  - Rash erythematous [Recovering/Resolving]
  - Nausea [Recovered/Resolved]
  - Poor quality sleep [Recovered/Resolved]
  - Platelet count decreased [Recovered/Resolved]
  - Vitamin D decreased [Not Recovered/Not Resolved]
  - Eructation [Recovered/Resolved]
  - Therapeutic response unexpected [Unknown]
  - Incorrect dose administered [Unknown]
